FAERS Safety Report 9668000 (Version 2)
Quarter: 2013Q4

REPORT INFORMATION
  Report Type: Spontaneous
  Country: GB (occurrence: GB)
  Receive Date: 20131104
  Receipt Date: 20131111
  Transmission Date: 20140711
  Serious: Yes (Other)
  Sender: FDA-Public Use
  Company Number: GB-GLAXOSMITHKLINE-B0936530A

PATIENT
  Sex: Female

DRUGS (1)
  1. SEROXAT [Suspect]
     Indication: CHRONIC FATIGUE SYNDROME
     Route: 048

REACTIONS (8)
  - Suicidal ideation [Unknown]
  - Withdrawal syndrome [Unknown]
  - Anxiety [Unknown]
  - Insomnia [Unknown]
  - Mental disorder [Unknown]
  - Dependence [Unknown]
  - Vomiting [Unknown]
  - Off label use [Unknown]
